FAERS Safety Report 5358019-2 (Version None)
Quarter: 2007Q2

REPORT INFORMATION
  Report Type: 
  Country: None (occurrence: None)
  Receive Date: 20070530
  Receipt Date: 20061128
  Transmission Date: 20071010
  Serious: Yes (Hospitalization)
  Sender: FDA-Public Use
  Company Number: US200612000118

PATIENT
  Age: 43 Year
  Sex: Female

DRUGS (3)
  1. ZYPREXA [Suspect]
     Indication: NERVOUSNESS
     Dosage: SEE IMAGE
     Dates: end: 20050101
  2. ZYPREXA [Suspect]
     Indication: NERVOUSNESS
     Dosage: SEE IMAGE
     Dates: start: 20020101
  3. ALBUTEROL [Concomitant]

REACTIONS (3)
  - HALLUCINATION, AUDITORY [None]
  - SELF INJURIOUS BEHAVIOUR [None]
  - SUICIDE ATTEMPT [None]
